FAERS Safety Report 7434716-X (Version None)
Quarter: 2011Q2

REPORT INFORMATION
  Report Type: 
  Country: None (occurrence: None)
  Receive Date: 20110425
  Receipt Date: 20110419
  Transmission Date: 20111010
  Serious: Yes (Hospitalization, Other)
  Sender: FDA-Public Use
  Company Number: CA-PFIZER INC-2010070025

PATIENT
  Age: 74 Year
  Sex: Male

DRUGS (7)
  1. LIPITOR [Suspect]
     Dosage: UNK
     Route: 048
  2. SPORANOX [Suspect]
     Indication: ONYCHOMYCOSIS
     Dosage: 100 MG, 2X/DAY
     Route: 048
     Dates: start: 20010220, end: 20010223
  3. ACETYLSALICYLIC ACID [Concomitant]
     Dosage: UNK
  4. NORVASC [Concomitant]
     Dosage: 5 MG, UNK
  5. OXAZEPAM [Concomitant]
     Dosage: UNK
  6. ATENOLOL [Concomitant]
     Dosage: UNK
  7. HYDROCHLOROTHIAZIDE [Concomitant]
     Dosage: UNK

REACTIONS (7)
  - ANAPHYLACTIC SHOCK [None]
  - RESPIRATORY DISTRESS [None]
  - DRUG INTERACTION [None]
  - RASH [None]
  - HYPOTENSION [None]
  - RHABDOMYOLYSIS [None]
  - PURPURA [None]
